FAERS Safety Report 5780599-3 (Version None)
Quarter: 2008Q2

REPORT INFORMATION
  Report Type: 
  Country: None (occurrence: None)
  Receive Date: 20080620
  Receipt Date: 20080613
  Transmission Date: 20081010
  Serious: Yes (Other)
  Sender: FDA-Public Use
  Company Number: US-ELI_LILLY_AND_COMPANY-US200806003082

PATIENT
  Age: 67 Year
  Sex: Male

DRUGS (1)
  1. HUMALOG [Suspect]

REACTIONS (2)
  - SURGERY [None]
  - VISUAL ACUITY REDUCED [None]
